FAERS Safety Report 4987885-5 (Version None)
Quarter: 2006Q2

REPORT INFORMATION
  Report Type: 
  Country: None (occurrence: None)
  Receive Date: 20060424
  Receipt Date: 20060404
  Transmission Date: 20061013
  Serious: Yes (Hospitalization)
  Sender: FDA-Public Use
  Company Number: MX200604000614

PATIENT
  Age: 16 Year
  Sex: Male

DRUGS (3)
  1. STRATTERA [Suspect]
     Indication: ATTENTION DEFICIT/HYPERACTIVITY DISORDER
     Dosage: 40 MG, 2/D, ORAL
     Route: 048
  2. OLANZAPINE [Suspect]
     Dosage: 5 MG, DAILY (1/D), ORAL
     Route: 048
  3. MIRTAZAPINE [Concomitant]

REACTIONS (7)
  - COORDINATION ABNORMAL [None]
  - FEELING DRUNK [None]
  - INTENTIONAL SELF-INJURY [None]
  - MULTIPLE DRUG OVERDOSE INTENTIONAL [None]
  - PYROMANIA [None]
  - SUICIDE ATTEMPT [None]
  - WEIGHT INCREASED [None]
